FAERS Safety Report 14294716 (Version 1)
Quarter: 2017Q4

REPORT INFORMATION
  Report Type: Report from Study
  Country: None (occurrence: US)
  Receive Date: 20171218
  Receipt Date: 20171218
  Transmission Date: 20180321
  Serious: Yes (Other)
  Sender: FDA-Public Use
  Company Number: US-ABBVIE-17K-163-1835232-00

PATIENT
  Sex: Male

DRUGS (1)
  1. HUMIRA [Suspect]
     Active Substance: ADALIMUMAB
     Indication: CROHN^S DISEASE
     Route: 058

REACTIONS (7)
  - Headache [Unknown]
  - Anal pruritus [Unknown]
  - Pyrexia [Unknown]
  - Productive cough [Unknown]
  - Depression [Unknown]
  - Dermal cyst [Recovering/Resolving]
  - Nasopharyngitis [Unknown]
